FAERS Safety Report 10050056 (Version 1)
Quarter: 2014Q2

REPORT INFORMATION
  Report Type: Spontaneous
  Country: US (occurrence: US)
  Receive Date: 20140401
  Receipt Date: 20140401
  Transmission Date: 20141212
  Serious: Yes (Other)
  Sender: FDA-Public Use
  Company Number: US-SA-2014SA034085

PATIENT
  Age: 9 Year
  Sex: Male

DRUGS (3)
  1. DDAVP NASAL SPRAY [Suspect]
     Indication: EPISTAXIS
     Dosage: NASAL SPRAY
     Route: 065
  2. DDAVP INJECTION [Suspect]
     Indication: EPISTAXIS
     Route: 065
  3. STIMATE [Suspect]
     Indication: EPISTAXIS
     Route: 065

REACTIONS (3)
  - Platelet dysfunction [Unknown]
  - Haemorrhage [Unknown]
  - Epistaxis [Unknown]
